FAERS Safety Report 4571902-0 (Version None)
Quarter: 2005Q1

REPORT INFORMATION
  Report Type: 
  Country: None (occurrence: None)
  Receive Date: 20050202
  Receipt Date: 20050121
  Transmission Date: 20050727
  Serious: Yes (Hospitalization, Other)
  Sender: FDA-Public Use
  Company Number: SUSI-2005-00035

PATIENT
  Age: 20 Year
  Sex: Male
  Weight: 86.2 kg

DRUGS (2)
  1. ADDERALL XR (DEXTROAMPHETAMINE SULFATE, DEXTROAMPHETAMINE SACCHARATE, [Suspect]
     Indication: ATTENTION DEFICIT/HYPERACTIVITY DISORDER
     Dosage: 30 MG, 2X/DAY; BID,
     Dates: start: 20041201, end: 20041201
  2. CONCERTA [Concomitant]

REACTIONS (6)
  - AGGRESSION [None]
  - DRUG WITHDRAWAL SYNDROME [None]
  - NERVE INJURY [None]
  - NIGHTMARE [None]
  - RESTLESSNESS [None]
  - SKIN LACERATION [None]
